FAERS Safety Report 19793692 (Version 1)
Quarter: 2021Q3

REPORT INFORMATION
  Report Type: Report from Study
  Country: US (occurrence: US)
  Receive Date: 20210906
  Receipt Date: 20210906
  Transmission Date: 20211014
  Serious: No
  Sender: FDA-Public Use
  Company Number: US-BIOVITRUM-2021US7995

PATIENT
  Age: 32 Year
  Sex: Male

DRUGS (1)
  1. KINERET [Suspect]
     Active Substance: ANAKINRA
     Indication: STILL^S DISEASE
     Route: 058
     Dates: start: 20210815

REACTIONS (8)
  - Exposure to SARS-CoV-2 [Unknown]
  - Injection site bruising [Unknown]
  - Off label use [Not Recovered/Not Resolved]
  - Pruritus [Unknown]
  - Rash [Unknown]
  - Injection site reaction [Unknown]
  - Injection site erythema [Unknown]
  - Infection [Unknown]

NARRATIVE: CASE EVENT DATE: 20210815
